FAERS Safety Report 6686239-3 (Version None)
Quarter: 2010Q2

REPORT INFORMATION
  Report Type: 
  Country: None (occurrence: None)
  Receive Date: 20100414
  Receipt Date: 20100331
  Transmission Date: 20101027
  Serious: Yes (Hospitalization)
  Sender: FDA-Public Use
  Company Number: 8053637

PATIENT
  Sex: Male
  Weight: 130 kg

DRUGS (8)
  1. CERTOLIZUMAB PEGOL         (CERTOLIZUMAB PEGOL) [Suspect]
     Indication: RHEUMATOID ARTHRITIS
     Dosage: 400 MG, ONE MONTHLY SUBCUTANEOUS
     Route: 058
     Dates: start: 20030710
  2. HUMALOG [Concomitant]
  3. METFORMIN HCL [Concomitant]
  4. ACTOS [Concomitant]
  5. LEVEMIR [Concomitant]
  6. MICARDIS [Concomitant]
  7. FUROSEMIDE [Concomitant]
  8. PANTOPRAZOLE [Concomitant]

REACTIONS (5)
  - GLOSSITIS [None]
  - HYPERPLASIA [None]
  - LEUKOPLAKIA ORAL [None]
  - ROAD TRAFFIC ACCIDENT [None]
  - STERNAL FRACTURE [None]
